FAERS Safety Report 6776358-5 (Version None)
Quarter: 2010Q2

REPORT INFORMATION
  Report Type: 
  Country: None (occurrence: None)
  Receive Date: 20100615
  Receipt Date: 20100603
  Transmission Date: 20101027
  Serious: Yes (Other)
  Sender: FDA-Public Use
  Company Number: LEO-2010-00494

PATIENT
  Age: 83 Year
  Sex: Female
  Weight: 72 kg

DRUGS (5)
  1. INNOHEP [Suspect]
     Indication: THROMBOSIS PROPHYLAXIS
     Dosage: 6000 IU, SUBCUTANEOUS
     Route: 058
     Dates: start: 20100129, end: 20100430
  2. THALIDOMIDE [Suspect]
     Indication: MULTIPLE MYELOMA
     Dates: end: 20100322
  3. PREDNISONE TAB [Concomitant]
  4. MELPHALAN HYDROCHLORIDE [Concomitant]
  5. BISPHOSPHONATES (BISPHOSPHONATES) [Concomitant]

REACTIONS (2)
  - DRUG INEFFECTIVE [None]
  - NEUTROPENIA [None]
